FAERS Safety Report 8928969 (Version 2)
Quarter: 2012Q4

REPORT INFORMATION
  Report Type: 
  Country: AU (occurrence: AU)
  Receive Date: 20121128
  Receipt Date: 20121213
  Transmission Date: 20130627
  Serious: Yes (Other)
  Sender: FDA-Public Use
  Company Number: PHHY2012AU108409

PATIENT
  Sex: Female

DRUGS (3)
  1. ACLASTA [Suspect]
     Indication: OSTEOPOROSIS
     Dosage: 5 mg
     Route: 042
     Dates: start: 20111217
  2. LIPITOR [Concomitant]
     Dosage: 40 mg daily
     Route: 048
  3. THYROXINE [Concomitant]
     Dosage: 50 mcg

REACTIONS (1)
  - Breast cancer [Unknown]
